FAERS Safety Report 9854686 (Version 3)
Quarter: 2014Q2

REPORT INFORMATION
  Report Type: Report from Study
  Country: CH (occurrence: CH)
  Receive Date: 20140130
  Receipt Date: 20140520
  Transmission Date: 20141212
  Serious: Yes (Death, Hospitalization)
  Sender: FDA-Public Use
  Company Number: CH-BRISTOL-MYERS SQUIBB COMPANY-20096814

PATIENT
  Age: 72 Year
  Sex: Female

DRUGS (2)
  1. CETUXIMAB [Suspect]
     Indication: COLORECTAL CANCER METASTATIC
     Dosage: RECENT DOSE ON:06JAN2014,700MG
     Route: 042
     Dates: start: 20131209
  2. CAPECITABINE [Suspect]
     Indication: COLORECTAL CANCER METASTATIC
     Dosage: RECENT DOSE: 2800MG,12JAN14
     Route: 048
     Dates: start: 20131209

REACTIONS (3)
  - Infection [Fatal]
  - Metabolic acidosis [Fatal]
  - Aphasia [Recovered/Resolved]
